FAERS Safety Report 4929553-1 (Version None)
Quarter: 2006Q1

REPORT INFORMATION
  Report Type: 
  Country: None (occurrence: None)
  Receive Date: 20060223
  Receipt Date: 20060210
  Transmission Date: 20060701
  Serious: Yes (Other)
  Sender: FDA-Public Use
  Company Number: 2006021484

PATIENT
  Sex: Male
  Weight: 79.3795 kg

DRUGS (5)
  1. VIAGRA [Suspect]
     Indication: ERECTILE DYSFUNCTION
     Dosage: 100 MG AS NECESSARY, ORAL
     Route: 048
     Dates: start: 20020701
  2. DILANTIN [Concomitant]
  3. ATIVAN [Concomitant]
  4. WELLBUTRIN [Concomitant]
  5. LEXAPRO (ESITALOPRAM) [Concomitant]

REACTIONS (6)
  - ASTHENIA [None]
  - BRAIN NEOPLASM MALIGNANT [None]
  - HEADACHE [None]
  - INCORRECT DOSE ADMINISTERED [None]
  - NAUSEA [None]
  - OVERDOSE [None]
